FAERS Safety Report 10783579 (Version 1)
Quarter: 2015Q1

REPORT INFORMATION
  Report Type: Spontaneous
  Country: US (occurrence: US)
  Receive Date: 20150210
  Receipt Date: 20150210
  Transmission Date: 20150721
  Serious: No
  Sender: FDA-Public Use
  Company Number: US-TEVA-539808USA

PATIENT
  Age: 33 Year
  Sex: Female
  Weight: 72.64 kg

DRUGS (1)
  1. PARAGARD T 380A [Suspect]
     Active Substance: COPPER
     Indication: CONTRACEPTION
     Route: 015
     Dates: start: 20150107, end: 20150123

REACTIONS (18)
  - Vaginal ulceration [Recovered/Resolved]
  - Vulvovaginal pruritus [Not Recovered/Not Resolved]
  - Erythema [Recovered/Resolved]
  - Vaginal haemorrhage [Recovered/Resolved]
  - Fungal infection [Unknown]
  - Dermatitis contact [Not Recovered/Not Resolved]
  - Hot flush [Recovered/Resolved]
  - Vulvovaginal burning sensation [Recovered/Resolved]
  - Skin exfoliation [Recovered/Resolved]
  - Skin discolouration [Not Recovered/Not Resolved]
  - Hypersensitivity [Not Recovered/Not Resolved]
  - Vulvovaginal swelling [Recovered/Resolved]
  - Vaginal disorder [Recovered/Resolved]
  - Pain in extremity [Recovered/Resolved]
  - Ovarian cyst [Unknown]
  - Vulvovaginal pain [Recovered/Resolved]
  - Rash [Recovered/Resolved]
  - Oedema peripheral [Not Recovered/Not Resolved]

NARRATIVE: CASE EVENT DATE: 20150113
